FAERS Safety Report 4419785-3 (Version None)
Quarter: 2004Q3

REPORT INFORMATION
  Report Type: 
  Country: None (occurrence: None)
  Receive Date: 20040804
  Receipt Date: 20040713
  Transmission Date: 20050211
  Serious: Yes (Death)
  Sender: FDA-Public Use
  Company Number: CA_040707126

PATIENT
  Sex: Female

DRUGS (1)
  1. FLUOXETINE [Suspect]
     Dates: start: 19980801

REACTIONS (3)
  - DRUG EXPOSURE DURING PREGNANCY [None]
  - STILLBIRTH [None]
  - UMBILICAL CORD ABNORMALITY [None]
